FAERS Safety Report 10232392 (Version 1)
Quarter: 2014Q2

REPORT INFORMATION
  Report Type: Spontaneous
  Country: US (occurrence: None)
  Receive Date: 20140610
  Receipt Date: 20140610
  Transmission Date: 20141212
  Serious: Yes (Death, Hospitalization, Other)
  Sender: FDA-Public Use
  Company Number: DAV-AE-DIL-14-01

PATIENT
  Age: 39 Year
  Sex: Male

DRUGS (2)
  1. DILTIAZEM [Suspect]
     Dosage: SEE NARRATIVE
  2. METOPROLOL [Concomitant]

REACTIONS (5)
  - Cardiac arrest [None]
  - Toxicity to various agents [None]
  - Brain oedema [None]
  - Hyperlipidaemia [None]
  - Laboratory test interference [None]
